FAERS Safety Report 6234545-9 (Version None)
Quarter: 2009Q2

REPORT INFORMATION
  Report Type: 
  Country: None (occurrence: None)
  Receive Date: 20090615
  Receipt Date: 20090428
  Transmission Date: 20091009
  Serious: No
  Sender: FDA-Public Use
  Company Number: DSA_33573_2009

PATIENT
  Sex: Female

DRUGS (13)
  1. XENAZINE [Suspect]
     Indication: MUSCLE TWITCHING
     Dosage: 12.5 MG QD
     Dates: start: 20090301, end: 20090401
  2. ALTACE [Concomitant]
  3. PROTONIX [Concomitant]
  4. CELEXA [Concomitant]
  5. MAXZIDE [Concomitant]
  6. LOVAZA [Concomitant]
  7. M.V.I. [Concomitant]
  8. VITAMIN D [Concomitant]
  9. CALAN [Concomitant]
  10. GLUCOPHAGE [Concomitant]
  11. DETROL LA [Concomitant]
  12. ALLEGRA [Concomitant]
  13. CALCIUM [Concomitant]

REACTIONS (3)
  - DRUG INEFFECTIVE FOR UNAPPROVED INDICATION [None]
  - INSOMNIA [None]
  - MUSCLE TWITCHING [None]
